FAERS Safety Report 6102366-3 (Version None)
Quarter: 2009Q1

REPORT INFORMATION
  Report Type: 
  Country: None (occurrence: None)
  Receive Date: 20090304
  Receipt Date: 20090220
  Transmission Date: 20090719
  Serious: Yes (Life-Threatening, Hospitalization)
  Sender: FDA-Public Use
  Company Number: GB-ROCHE-616929

PATIENT
  Sex: Female

DRUGS (1)
  1. CEFTRIAXONE SODIUM [Suspect]
     Indication: CHORIOAMNIONITIS

REACTIONS (4)
  - CONVULSION NEONATAL [None]
  - ENCEPHALOPATHY NEONATAL [None]
  - INFANTILE APNOEIC ATTACK [None]
  - TACHYCARDIA FOETAL [None]
